FAERS Safety Report 21512377 (Version 2)
Quarter: 2022Q4

REPORT INFORMATION
  Report Type: Report from Study
  Country: US (occurrence: None)
  Receive Date: 20221027
  Receipt Date: 20221108
  Transmission Date: 20230112
  Serious: Yes (Hospitalization, Other)
  Sender: FDA-Public Use
  Company Number: US-Merck Healthcare KGaA-9360426

PATIENT
  Age: 52 Year
  Sex: Female

DRUGS (1)
  1. REBIF [Suspect]
     Active Substance: INTERFERON BETA-1A
     Indication: Multiple sclerosis
     Route: 058
     Dates: start: 20180315

REACTIONS (9)
  - Fall [Unknown]
  - Loss of consciousness [Unknown]
  - Syncope [Recovered/Resolved]
  - Electrolyte depletion [Recovering/Resolving]
  - Urinary tract infection [Unknown]
  - Hypotension [Recovering/Resolving]
  - Ligament sprain [Unknown]
  - Contusion [Unknown]
  - Joint swelling [Unknown]
